FAERS Safety Report 20784776 (Version 3)
Quarter: 2023Q2

REPORT INFORMATION
  Report Type: Spontaneous
  Country: US (occurrence: US)
  Receive Date: 20220504
  Receipt Date: 20230427
  Transmission Date: 20230722
  Serious: No
  Sender: FDA-Public Use
  Company Number: US-PFIZER INC-202200269900

PATIENT
  Age: 5 Year
  Sex: Female

DRUGS (1)
  1. EUCRISA [Suspect]
     Active Substance: CRISABOROLE
     Indication: Eczema
     Dosage: APPLY A SMALL AMOUNT TOPICALLY TO THE AFFECTED AREAS 2X/DAY
     Route: 061

REACTIONS (1)
  - Pruritus [Unknown]
